FAERS Safety Report 7731870-7 (Version None)
Quarter: 2011Q3

REPORT INFORMATION
  Report Type: 
  Country: None (occurrence: None)
  Receive Date: 20110906
  Receipt Date: 20110831
  Transmission Date: 20111222
  Serious: Yes (Hospitalization)
  Sender: FDA-Public Use
  Company Number: RU-ROCHE-796132

PATIENT
  Age: 71 Year
  Sex: Female

DRUGS (4)
  1. BONIVA [Suspect]
     Indication: OSTEOPOROSIS
     Dosage: FREQUENCY MONTHLY
     Route: 048
     Dates: start: 20110401, end: 20110801
  2. CALCIUM-D3 NYCOMED [Concomitant]
     Indication: OSTEOPOROSIS
     Dosage: FREQUENCY DAILY
     Route: 048
  3. BISOPROLOL FUMARATE [Concomitant]
     Dosage: FREQUECNY DAILY
     Route: 048
  4. TRENTAL [Concomitant]

REACTIONS (3)
  - HAEMOGLOBIN INCREASED [None]
  - HAEMOGLOBIN DECREASED [None]
  - INFLUENZA LIKE ILLNESS [None]
